FAERS Safety Report 7074020-5 (Version None)
Quarter: 2010Q4

REPORT INFORMATION
  Report Type: 
  Country: None (occurrence: None)
  Receive Date: 20101029
  Receipt Date: 20101019
  Transmission Date: 20110411
  Serious: Yes (Hospitalization)
  Sender: FDA-Public Use
  Company Number: IE-ABBOTT-10P-229-0679402-02

PATIENT
  Sex: Female
  Weight: 66.2 kg

DRUGS (25)
  1. HUMIRA [Suspect]
     Indication: RHEUMATOID ARTHRITIS
     Route: 058
     Dates: start: 20030728, end: 20100501
  2. FOLIC ACID [Concomitant]
     Indication: PROPHYLAXIS
     Dates: start: 20041130, end: 20091002
  3. FOLIC ACID [Concomitant]
     Indication: VITAMIN SUPPLEMENTATION
     Route: 048
     Dates: start: 20031121, end: 20091002
  4. DICLOFENAC SODIUM [Concomitant]
     Indication: ARTHRALGIA
     Route: 061
     Dates: start: 20041130, end: 20091002
  5. DICLOFENAC SODIUM [Concomitant]
     Indication: PAIN MANAGEMENT
     Route: 048
     Dates: start: 20041130, end: 20091002
  6. DICLOFENAC SODIUM [Concomitant]
     Route: 048
     Dates: start: 20041130, end: 20091002
  7. DICLOFENAC SODIUM [Concomitant]
     Route: 048
     Dates: start: 20061117, end: 20091009
  8. DICLOFENAC SODIUM [Concomitant]
     Route: 048
     Dates: start: 20031121, end: 20091230
  9. DISPRIN [Concomitant]
     Indication: PAIN
     Route: 048
     Dates: start: 20060609, end: 20100812
  10. CALCICHEW [Concomitant]
     Indication: OSTEOPENIA
     Route: 048
     Dates: start: 20060609
  11. PENICILLIN [Concomitant]
     Indication: PHARYNGITIS
     Route: 048
     Dates: start: 20081117, end: 20091009
  12. EURAX [Concomitant]
     Indication: PRURITUS
     Dosage: 3CM
     Route: 061
     Dates: start: 20081117, end: 20091009
  13. AMOXICILLIN [Concomitant]
     Indication: HELICOBACTER INFECTION
     Route: 048
     Dates: start: 20090508, end: 20091002
  14. KLACID [Concomitant]
     Indication: HELICOBACTER INFECTION
     Route: 048
     Dates: start: 20090508, end: 20091002
  15. NEXIUM [Concomitant]
     Indication: HELICOBACTER INFECTION
     Route: 048
     Dates: start: 20090508, end: 20091002
  16. AMOXIL [Concomitant]
     Indication: PHARYNGITIS
     Route: 048
     Dates: start: 20091228, end: 20100126
  17. SOLUBLE ASPIRIN [Concomitant]
     Indication: RHEUMATOID ARTHRITIS
     Route: 048
     Dates: start: 20011012, end: 20091002
  18. DICLOFENAC SODIUM [Concomitant]
     Indication: RHEUMATOID ARTHRITIS
     Route: 048
     Dates: start: 20031121, end: 20091002
  19. DICLOFENAC SODIUM [Concomitant]
     Route: 048
     Dates: start: 20031121, end: 20091002
  20. ADCORTYL [Concomitant]
     Indication: MUSCULOSKELETAL PAIN
     Route: 014
     Dates: start: 20031121, end: 20091230
  21. CIPROXIN [Concomitant]
     Indication: LARGE INTESTINE PERFORATION
     Route: 048
     Dates: start: 20100624, end: 20100629
  22. FLAGYL [Concomitant]
     Indication: PRODUCT USED FOR UNKNOWN INDICATION
     Route: 042
     Dates: start: 20101018
  23. AUGMENTIN '125' [Concomitant]
     Indication: PRODUCT USED FOR UNKNOWN INDICATION
     Route: 042
     Dates: start: 20101018
  24. PANADOL [Concomitant]
     Indication: PRODUCT USED FOR UNKNOWN INDICATION
     Route: 042
     Dates: start: 20101018
  25. METHOTREXATE [Concomitant]
     Indication: RHEUMATOID ARTHRITIS

REACTIONS (1)
  - COLONIC STENOSIS [None]
